FAERS Safety Report 5976623-5 (Version None)
Quarter: 2008Q4

REPORT INFORMATION
  Report Type: 
  Country: None (occurrence: None)
  Receive Date: 20081201
  Receipt Date: 20081201
  Transmission Date: 20090506
  Serious: Yes (Other)
  Sender: FDA-Public Use
  Company Number: None

PATIENT

DRUGS (1)
  1. TYLENOL EXTRA STRENGTH 500MG, MONELI [Suspect]
     Dosage: 1000 Q4-6H

REACTIONS (1)
  - MEDICATION ERROR [None]
